FAERS Safety Report 7455287-8 (Version None)
Quarter: 2011Q2

REPORT INFORMATION
  Report Type: 
  Country: None (occurrence: None)
  Receive Date: 20110503
  Receipt Date: 20110428
  Transmission Date: 20111010
  Serious: Yes (Life-Threatening)
  Sender: FDA-Public Use
  Company Number: US-BRISTOL-MYERS SQUIBB COMPANY-15583388

PATIENT

DRUGS (2)
  1. CETUXIMAB [Suspect]
     Indication: ASTROCYTOMA
     Dosage: ACTUAL DOSE:470MG; LAST DOSE:28-MAR-2011
     Route: 042
     Dates: start: 20110214
  2. DEXAMETHASONE [Suspect]
     Dosage: ALSO ON 22FEB2011,BID,PO,3MG
     Route: 048
     Dates: start: 20110201

REACTIONS (1)
  - LYMPHOPENIA [None]
